FAERS Safety Report 14753929 (Version 3)
Quarter: 2018Q2

REPORT INFORMATION
  Report Type: Spontaneous
  Country: JP (occurrence: JP)
  Receive Date: 20180412
  Receipt Date: 20180517
  Transmission Date: 20180711
  Serious: Yes (Hospitalization, Other)
  Sender: FDA-Public Use
  Company Number: JP-ALLERGAN-1820355US

PATIENT
  Age: 28 Year
  Sex: Female

DRUGS (2)
  1. ASENAPINE MALEATE - BP [Suspect]
     Active Substance: ASENAPINE MALEATE
     Dosage: 120 MG, SINGLE
     Route: 060
     Dates: start: 20180330, end: 20180330
  2. ASENAPINE MALEATE - BP [Suspect]
     Active Substance: ASENAPINE MALEATE
     Indication: SCHIZOPHRENIA
     Dosage: 5 MG, BID
     Route: 060
     Dates: start: 20180329, end: 20180329

REACTIONS (2)
  - Intentional overdose [Recovered/Resolved]
  - Intentional self-injury [Unknown]

NARRATIVE: CASE EVENT DATE: 20180330
